FAERS Safety Report 8010708-7 (Version None)
Quarter: 2011Q4

REPORT INFORMATION
  Report Type: 
  Country: None (occurrence: None)
  Receive Date: 20111228
  Receipt Date: 20111214
  Transmission Date: 20120403
  Serious: Yes (Other)
  Sender: FDA-Public Use
  Company Number: JP-ASTELLAS-2011JP008095

PATIENT
  Sex: Female
  Weight: 52.7 kg

DRUGS (13)
  1. ASACOL [Concomitant]
     Dosage: 1.2 MG, TID
     Route: 048
     Dates: start: 20110927
  2. SULFASALAZINE [Interacting]
     Dosage: 1 G, QID
     Route: 048
     Dates: end: 20110926
  3. RABEPRAZOLE SODIUM [Concomitant]
     Dosage: 10 MG, UNKNOWN/D
     Route: 048
     Dates: start: 20110908
  4. PROGRAF [Suspect]
     Indication: COLITIS ULCERATIVE
     Dosage: 2 MG, BID
     Route: 048
     Dates: start: 20110921, end: 20110923
  5. PROGRAF [Interacting]
     Dosage: 4 MG, BID
     Route: 048
     Dates: start: 20110924, end: 20111001
  6. PREDNISOLONE [Concomitant]
     Dosage: 50 MG, UNKNOWN/D
     Route: 048
     Dates: start: 20110916, end: 20110918
  7. PREDNISOLONE [Concomitant]
     Dosage: 20 MG, UNKNOWN/D
     Route: 048
     Dates: start: 20111011, end: 20111027
  8. TRANCOLON [Concomitant]
     Dosage: 7.5 MG, TID
     Route: 048
     Dates: start: 20110908
  9. FERRUM [Concomitant]
     Dosage: 100 MG, UID/QD
     Route: 048
     Dates: start: 20110923
  10. PROGRAF [Interacting]
     Dosage: 3 MG, BID
     Route: 048
     Dates: start: 20111011
  11. PREDNISOLONE [Concomitant]
     Dosage: 40 MG, UNKNOWN/D
     Route: 048
     Dates: start: 20110919, end: 20111010
  12. PROGRAF [Interacting]
     Dosage: 5 MG, BID
     Route: 048
     Dates: start: 20111002, end: 20111010
  13. PREDNISOLONE [Concomitant]
     Dosage: 5 MG, TID
     Route: 048
     Dates: start: 20111028

REACTIONS (2)
  - DRUG INTERACTION [None]
  - DRUG LEVEL DECREASED [None]
